FAERS Safety Report 4735781-0 (Version None)
Quarter: 2005Q3

REPORT INFORMATION
  Report Type: 
  Country: None (occurrence: None)
  Receive Date: 20050805
  Receipt Date: 20030303
  Transmission Date: 20060218
  Serious: Yes (Other)
  Sender: FDA-Public Use
  Company Number: 2003UW11764

PATIENT
  Age: 11 Year
  Sex: Female

DRUGS (2)
  1. TOPROL-XL [Suspect]
     Route: 048
  2. TEGRETOL-XR [Suspect]
     Indication: EPILEPSY
     Dosage: 4 200 MG TABLETS IN AM AND 3 200MG TABLETS IN PM
     Route: 048

REACTIONS (3)
  - CONVULSION [None]
  - MEDICATION ERROR [None]
  - WRONG DRUG ADMINISTERED [None]
